FAERS Safety Report 7351102-1 (Version None)
Quarter: 2011Q1

REPORT INFORMATION
  Report Type: 
  Country: None (occurrence: None)
  Receive Date: 20110314
  Receipt Date: 20110308
  Transmission Date: 20110831
  Serious: Yes (Other)
  Sender: FDA-Public Use
  Company Number: US-PFIZER INC-2011051101

PATIENT
  Sex: Female
  Weight: 48.98 kg

DRUGS (2)
  1. NYQUIL [Concomitant]
  2. DEXTROMETHORPHAN AND DEXTROMETHORPHAN HYDROBROMIDE AND GUAIFENESIN [Suspect]
     Indication: COUGH
     Dosage: UNK
     Dates: start: 20110305, end: 20110306

REACTIONS (9)
  - DISORIENTATION [None]
  - LOSS OF CONSCIOUSNESS [None]
  - FALL [None]
  - HEAD INJURY [None]
  - NERVOUS SYSTEM DISORDER [None]
  - CONTUSION [None]
  - MEMORY IMPAIRMENT [None]
  - LIMB INJURY [None]
  - HYPERHIDROSIS [None]
